FAERS Safety Report 10594520 (Version 2)
Quarter: 2015Q1

REPORT INFORMATION
  Report Type: Spontaneous
  Country: US (occurrence: US)
  Receive Date: 20141120
  Receipt Date: 20150121
  Transmission Date: 20150720
  Serious: No
  Sender: FDA-Public Use
  Company Number: US-009507513-1411USA002720

PATIENT
  Age: 58 Year
  Sex: Female
  Weight: 68.93 kg

DRUGS (3)
  1. PEGINTRON [Suspect]
     Active Substance: PEGINTERFERON ALFA-2B
     Indication: HEPATITIS C
     Dosage: 0.5 ML, QW
     Route: 058
     Dates: start: 20141102, end: 20141104
  2. SOVALDI [Suspect]
     Active Substance: SOFOSBUVIR
     Indication: HEPATITIS C
     Dosage: 400
     Route: 048
     Dates: start: 20141103
  3. REBETOL [Suspect]
     Active Substance: RIBAVIRIN
     Indication: HEPATITIS C
     Dosage: 400/600
     Route: 048
     Dates: start: 20141103, end: 20141104

REACTIONS (5)
  - Blood pressure increased [Recovered/Resolved]
  - Malaise [Recovered/Resolved]
  - Chills [Unknown]
  - Dizziness [Recovered/Resolved]
  - Pyrexia [Unknown]

NARRATIVE: CASE EVENT DATE: 201411
